FAERS Safety Report 8637932 (Version 2)
Quarter: 2013Q1

REPORT INFORMATION
  Report Type: Spontaneous
  Country: US (occurrence: US)
  Receive Date: 20120627
  Receipt Date: 20130213
  Transmission Date: 20140127
  Serious: Yes (Hospitalization)
  Sender: FDA-Public Use
  Company Number: US-ELI_LILLY_AND_COMPANY-US201206005711

PATIENT
  Age: 66 None
  Sex: Female

DRUGS (13)
  1. FORTEO [Suspect]
     Indication: OSTEOPOROSIS
     Dosage: 20 U, QD
  2. LORATADINE [Concomitant]
     Dosage: UNK, UNKNOWN
  3. ALBUTEROL [Concomitant]
     Dosage: UNK, UNKNOWN
  4. ADVAIR [Concomitant]
     Dosage: UNK, UNKNOWN
  5. LISINOPRIL [Concomitant]
     Dosage: UNK, UNKNOWN
  6. METOPROLOL [Concomitant]
     Dosage: UNK, UNKNOWN
  7. ASPIRIN [Concomitant]
     Dosage: UNK, UNKNOWN
  8. FLUOXETINE [Concomitant]
     Dosage: UNK, UNKNOWN
  9. LORAZEPAM [Concomitant]
     Dosage: UNK, UNKNOWN
  10. MAGNESIUM [Concomitant]
     Dosage: UNK, UNKNOWN
  11. OMEGA 3 [Concomitant]
     Dosage: UNK, UNKNOWN
  12. SINGULAIR [Concomitant]
     Dosage: UNK, UNKNOWN
  13. FLUTICASONE [Concomitant]
     Dosage: UNK, UNKNOWN

REACTIONS (2)
  - Lung disorder [Unknown]
  - Dyspnoea [Unknown]
